FAERS Safety Report 23063517 (Version 1)
Quarter: 2023Q4

REPORT INFORMATION
  Report Type: Spontaneous
  Country: None (occurrence: US)
  Receive Date: 20231013
  Receipt Date: 20231013
  Transmission Date: 20240109
  Serious: No
  Sender: FDA-Public Use
  Company Number: US-LGM Pharma Solutions, LLC-2147064

PATIENT
  Age: 21 Year
  Sex: Male

DRUGS (1)
  1. CHENODAL [Suspect]
     Active Substance: CHENODIOL
     Indication: Lipoprotein deficiency
     Route: 048
     Dates: start: 20230915

REACTIONS (3)
  - Abdominal discomfort [Recovering/Resolving]
  - Diarrhoea [Not Recovered/Not Resolved]
  - Muscle spasms [Unknown]
